FAERS Safety Report 5236432-1 (Version None)
Quarter: 2007Q1

REPORT INFORMATION
  Report Type: 
  Country: None (occurrence: None)
  Receive Date: 20061208
  Receipt Date: 20060810
  Transmission Date: 20070707
  Serious: Yes (Other)
  Sender: FDA-Public Use
  Company Number: 2006UW15357

PATIENT
  Age: 58 Year
  Sex: Male
  Weight: 87.9978 kg

DRUGS (9)
  1. CRESTOR [Suspect]
     Indication: BLOOD CHOLESTEROL INCREASED
     Dosage: 40 MG QD PO
     Route: 048
  2. CRESTOR [Suspect]
     Indication: BLOOD CHOLESTEROL INCREASED
     Dosage: 20 MG QD PO
     Route: 048
     Dates: end: 20060703
  3. CRESTOR [Suspect]
     Indication: BLOOD CHOLESTEROL INCREASED
     Dosage: 40 MG QD PO
     Route: 048
     Dates: start: 20060703
  4. TOPROL-XL [Concomitant]
  5. ASPIRIN [Concomitant]
  6. FISH OIL [Concomitant]
  7. THREE MEDICATIONS [Concomitant]
  8. ALTACE [Concomitant]
  9. LISINOPRIL [Concomitant]

REACTIONS (1)
  - GOUT [None]
